FAERS Safety Report 7679269-6 (Version None)
Quarter: 2011Q3

REPORT INFORMATION
  Report Type: 
  Country: None (occurrence: None)
  Receive Date: 20110812
  Receipt Date: 20110729
  Transmission Date: 20111222
  Serious: Yes (Other)
  Sender: FDA-Public Use
  Company Number: QA-RANBAXY-2011R1-46760

PATIENT
  Age: 30 Year
  Sex: Male

DRUGS (1)
  1. OXCARBAZEPINE [Suspect]
     Indication: DYSKINESIA
     Dosage: 300 MG TWICE DAILY
     Route: 048

REACTIONS (1)
  - VENTRICULAR FIBRILLATION [None]
